FAERS Safety Report 14317974 (Version 4)
Quarter: 2018Q1

REPORT INFORMATION
  Report Type: Spontaneous
  Country: GB (occurrence: GB)
  Receive Date: 20171222
  Receipt Date: 20180207
  Transmission Date: 20180509
  Serious: Yes (Life-Threatening, Hospitalization, Other)
  Sender: FDA-Public Use
  Company Number: GB-TEVA-2017-GB-835570

PATIENT
  Age: 77 Year
  Sex: Male
  Weight: 80 kg

DRUGS (8)
  1. LISINOPRIL. [Concomitant]
     Active Substance: LISINOPRIL
     Dosage: 5 MILLIGRAM DAILY;
     Route: 048
  2. PRAVASTATIN. [Suspect]
     Active Substance: PRAVASTATIN
     Indication: PRODUCT USED FOR UNKNOWN INDICATION
     Dosage: DOSAGE FORM: UNSPECIFIED
     Route: 065
  3. PREDNISOLONE. [Suspect]
     Active Substance: PREDNISOLONE
     Indication: PROSTATE CANCER METASTATIC
     Dosage: 15 MILLIGRAM DAILY;
     Route: 048
     Dates: start: 20170622, end: 20170903
  4. AMLODIPINE [Concomitant]
     Active Substance: AMLODIPINE BESYLATE
     Dosage: 5 MILLIGRAM DAILY;
     Route: 048
  5. ABIRATERONE ACETATE. [Suspect]
     Active Substance: ABIRATERONE ACETATE
     Indication: PROSTATE CANCER METASTATIC
     Dosage: 1000 MILLIGRAM DAILY;
     Route: 048
     Dates: start: 20170622, end: 20170903
  6. OMEPRAZOLE. [Concomitant]
     Active Substance: OMEPRAZOLE
     Dosage: 20 MILLIGRAM DAILY;
     Route: 048
  7. PREDNISOLONE. [Suspect]
     Active Substance: PREDNISOLONE
     Indication: PROSTATE CANCER METASTATIC
     Route: 048
     Dates: start: 20171109
  8. BENDROFLUMETHIAZIDE [Concomitant]
     Active Substance: BENDROFLUMETHIAZIDE
     Dosage: DOSAGE FORM: UNSPECIFIED
     Route: 065

REACTIONS (6)
  - Lung disorder [Unknown]
  - Restlessness [Unknown]
  - Prostate cancer metastatic [Unknown]
  - Liver function test abnormal [Unknown]
  - Respiratory failure [Recovering/Resolving]
  - Groin pain [Unknown]
